FAERS Safety Report 18528702 (Version 1)
Quarter: 2020Q4

REPORT INFORMATION
  Report Type: Spontaneous
  Country: GB (occurrence: GB)
  Receive Date: 20201120
  Receipt Date: 20201120
  Transmission Date: 20210114
  Serious: Yes (Life-Threatening, Hospitalization)
  Sender: FDA-Public Use
  Company Number: GB-PFIZER INC-2020452806

PATIENT
  Age: 46 Year
  Sex: Female

DRUGS (2)
  1. TRANEXAMIC ACID. [Suspect]
     Active Substance: TRANEXAMIC ACID
     Indication: MENORRHAGIA
     Dosage: 1 G, 3X/DAY DURING MENSTRUAL PERIOD
  2. MEFENAMIC ACID. [Suspect]
     Active Substance: MEFENAMIC ACID
     Indication: MENORRHAGIA
     Dosage: 500 MG, 3X/DAY DURING MENSTRUAL PERIOD

REACTIONS (1)
  - Pulmonary embolism [Recovered/Resolved]
